FAERS Safety Report 9466806 (Version 1)
Quarter: 2013Q3

REPORT INFORMATION
  Report Type: Spontaneous
  Country: BR (occurrence: BR)
  Receive Date: 20130820
  Receipt Date: 20130820
  Transmission Date: 20140515
  Serious: Yes (Hospitalization)
  Sender: FDA-Public Use
  Company Number: BR-ELI_LILLY_AND_COMPANY-BR201308003740

PATIENT
  Age: 48 Year
  Sex: Male
  Weight: 125 kg

DRUGS (17)
  1. HUMULIN N [Suspect]
     Indication: DIABETES MELLITUS
     Dosage: 20 IU, QD
     Route: 065
     Dates: start: 201212
  2. HUMULIN N [Suspect]
     Dosage: 40 IU, EACH MORNING
     Route: 058
  3. HUMULIN N [Suspect]
     Dosage: 30 IU, EACH EVENING
     Route: 058
  4. NOVOLIN R [Suspect]
     Dosage: UNK, UNKNOWN
     Route: 065
  5. CARVEDILOL [Concomitant]
     Dosage: 25 MG, UNKNOWN
     Route: 065
  6. ESPIRONOLACTONA [Concomitant]
     Dosage: 50 MG, UNKNOWN
     Route: 065
  7. GALVUS [Concomitant]
     Dosage: 50 MG, UNKNOWN
     Route: 065
  8. RIVOTRIL [Concomitant]
     Dosage: 0.5 MG, UNKNOWN
     Route: 065
  9. LASIX [Concomitant]
     Dosage: 20 MG, UNKNOWN
     Route: 065
  10. ZETSIM [Concomitant]
     Dosage: UNK, UNKNOWN
     Route: 065
  11. DIAMICRON [Concomitant]
     Dosage: 60 MG, UNKNOWN
     Route: 065
  12. TRAZODONE HYDROCHLORIDE [Concomitant]
     Dosage: 50 MG, UNKNOWN
     Route: 065
  13. PINAVERIUM BROMIDE [Concomitant]
     Dosage: 100 MG, UNKNOWN
     Route: 065
  14. DAFORIN [Concomitant]
     Dosage: 20 MG, UNKNOWN
     Route: 065
  15. ENALAPRIL [Concomitant]
     Dosage: 10 MG, UNKNOWN
     Route: 065
  16. ORLISTAT [Concomitant]
     Dosage: 120 MG, UNKNOWN
     Route: 065
  17. ASPIRINA [Concomitant]
     Dosage: 100 MG, UNKNOWN
     Route: 065

REACTIONS (3)
  - Blood glucose increased [Recovered/Resolved]
  - Wrong drug administered [Unknown]
  - Hyperglycaemia [Recovered/Resolved]
